FAERS Safety Report 10135883 (Version 2)
Quarter: 2014Q2

REPORT INFORMATION
  Report Type: Spontaneous
  Country: CN (occurrence: CN)
  Receive Date: 20140429
  Receipt Date: 20140523
  Transmission Date: 20141212
  Serious: Yes (Other)
  Sender: FDA-Public Use
  Company Number: CN-JNJFOC-20140413563

PATIENT
  Sex: Male
  Weight: 58 kg

DRUGS (2)
  1. TYLENOL [Suspect]
     Indication: ACUTE TONSILLITIS
     Route: 048
     Dates: start: 20130223, end: 20130223
  2. TYLENOL [Suspect]
     Indication: PYREXIA
     Route: 048
     Dates: start: 20130223, end: 20130223

REACTIONS (2)
  - Haematemesis [Unknown]
  - Off label use [Unknown]
